FAERS Safety Report 5121250-5 (Version None)
Quarter: 2006Q4

REPORT INFORMATION
  Report Type: 
  Country: None (occurrence: None)
  Receive Date: 20061005
  Receipt Date: 20060928
  Transmission Date: 20070319
  Serious: Yes (Life-Threatening)
  Sender: FDA-Public Use
  Company Number: FR-BOEHRINGER INGELHEIM PHARMACEUTICALS, INC.-2006-FF-00957FF

PATIENT
  Age: 53 Year
  Sex: Male
  Weight: 73 kg

DRUGS (4)
  1. APTIVUS [Suspect]
     Indication: HIV INFECTION
     Dosage: TPV/RTV: 1000 MG / 400 MG DAILY
     Route: 048
     Dates: start: 20060717, end: 20060809
  2. ZIAGEN [Concomitant]
     Indication: HIV INFECTION
     Route: 048
     Dates: start: 20060623
  3. TRUVADA [Concomitant]
     Indication: HIV INFECTION
     Dosage: EMTRICITABINE 200 MG / TENOFOVIR 245 MG DAILY
     Route: 048
     Dates: start: 20060623
  4. KOGENATE [Concomitant]
     Indication: COAGULOPATHY

REACTIONS (2)
  - HAEMARTHROSIS [None]
  - HAEMORRHAGE [None]
